FAERS Safety Report 23085463 (Version 1)
Quarter: 2023Q4

REPORT INFORMATION
  Report Type: Spontaneous
  Country: US (occurrence: US)
  Receive Date: 20231019
  Receipt Date: 20231019
  Transmission Date: 20240110
  Serious: No
  Sender: FDA-Public Use
  Company Number: US-ABBVIE-5457516

PATIENT
  Sex: Female

DRUGS (1)
  1. RINVOQ [Suspect]
     Active Substance: UPADACITINIB
     Indication: Rheumatoid arthritis
     Dosage: DOSAGE: 15 MG
     Route: 048
     Dates: start: 20231013

REACTIONS (3)
  - Headache [Unknown]
  - Pain in extremity [Unknown]
  - Muscle twitching [Unknown]

NARRATIVE: CASE EVENT DATE: 20231013
